FAERS Safety Report 8891293 (Version 2)
Quarter: 2012Q4

REPORT INFORMATION
  Report Type: 
  Country: IT (occurrence: IT)
  Receive Date: 20121107
  Receipt Date: 20121109
  Transmission Date: 20130627
  Serious: Yes (Hospitalization)
  Sender: FDA-Public Use
  Company Number: IT-TEVA-214447ISR

PATIENT
  Age: 68 Year
  Sex: Male

DRUGS (17)
  1. CISPLATIN [Suspect]
     Indication: SMALL CELL LUNG CANCER STAGE UNSPECIFIED
     Dosage: .8929 Milligram Daily;
     Route: 041
     Dates: start: 20090727, end: 20090727
  2. CISPLATIN [Suspect]
     Route: 042
     Dates: start: 20090727, end: 20090802
  3. ETOPOSIDE [Suspect]
     Indication: SMALL CELL LUNG CANCER STAGE UNSPECIFIED
     Route: 042
     Dates: start: 20090729, end: 20090802
  4. LASTET [Suspect]
     Indication: SMALL CELL LUNG CANCER STAGE UNSPECIFIED
     Dosage: 4.6429 Milligram Daily;
     Route: 041
     Dates: start: 20090727, end: 20090727
  5. SOLDESAM [Concomitant]
     Dosage: 64 Gtt Daily;
     Dates: start: 20090727, end: 20090810
  6. KYTRIL [Concomitant]
  7. MONICO S.P.A [Concomitant]
  8. CONGESCOR [Concomitant]
     Dates: start: 20090727, end: 20090810
  9. ENAPREN [Concomitant]
     Dates: start: 20090727
  10. SPIRIVA [Concomitant]
  11. SELEPARINA [Concomitant]
     Route: 058
     Dates: start: 20090727
  12. OMEPRAZOLE [Concomitant]
  13. DECADRON [Concomitant]
  14. VENTOLIN [Concomitant]
     Dosage: 1 puff X 2
  15. TAVOR [Concomitant]
  16. CO-EFFERALGAN [Concomitant]
     Dosage: 1 packet
  17. NAPRILENE [Concomitant]

REACTIONS (3)
  - Pancytopenia [Recovered/Resolved with Sequelae]
  - Subcutaneous abscess [Recovered/Resolved with Sequelae]
  - Pyrexia [Recovered/Resolved]
